FAERS Safety Report 21390893 (Version 1)
Quarter: 2022Q3

REPORT INFORMATION
  Report Type: Spontaneous
  Country: US (occurrence: None)
  Receive Date: 20220927
  Receipt Date: 20220927
  Transmission Date: 20221027
  Serious: No
  Sender: FDA-Public Use
  Company Number: None

PATIENT
  Age: 25 Year
  Sex: Female

DRUGS (2)
  1. RELAFEN [Suspect]
     Active Substance: NABUMETONE
  2. CYCLOBENZAPRINE [Suspect]
     Active Substance: CYCLOBENZAPRINE

REACTIONS (3)
  - Drug ineffective [None]
  - Abdominal discomfort [None]
  - Dizziness [None]

NARRATIVE: CASE EVENT DATE: 20220927
